FAERS Safety Report 9522556 (Version 2)
Quarter: 2013Q3

REPORT INFORMATION
  Report Type: Spontaneous
  Country: FR (occurrence: None)
  Receive Date: 20130830
  Receipt Date: 20130905
  Transmission Date: 20140515
  Serious: Yes (Hospitalization)
  Sender: FDA-Public Use
  Company Number: 2013037663

PATIENT
  Age: 44 Year
  Sex: Female

DRUGS (2)
  1. PRIVIGEN (IMMUNE GLOBULIN INTRAVENOUS (HUMAN) 10% LIQUID) [Suspect]
     Indication: HYPOGAMMAGLOBULINAEMIA
     Dosage: 30 G QD, IV (PERFUSION), 16:00 RATE OF 21.6 ML/H, INCR. AFT. 30 MIN TO 43.2 ML/H AT 17:10 TO 86.4 ML/H
     Route: 042
     Dates: start: 20130806
  2. OXYGEN (OXYGEN) [Concomitant]

REACTIONS (6)
  - Dyspnoea [None]
  - Chills [None]
  - Hyperthermia [None]
  - Pulmonary function test decreased [None]
  - Oxygen consumption increased [None]
  - Livedo reticularis [None]
